FAERS Safety Report 6193280-6 (Version None)
Quarter: 2009Q2

REPORT INFORMATION
  Report Type: 
  Country: None (occurrence: None)
  Receive Date: 20090518
  Receipt Date: 20090511
  Transmission Date: 20091009
  Serious: Yes (Other)
  Sender: FDA-Public Use
  Company Number: B0574465A

PATIENT
  Sex: Male
  Weight: 60 kg

DRUGS (6)
  1. COMBIVIR [Suspect]
     Indication: HIV INFECTION
     Route: 048
     Dates: start: 20040201, end: 20060217
  2. RIBAVIRIN [Suspect]
     Indication: HEPATITIS C
     Dosage: 800MG PER DAY
     Route: 065
     Dates: start: 20060203, end: 20090109
  3. PEGINTERFERON ALFA-2A [Concomitant]
     Dates: start: 20060203, end: 20070109
  4. TENOFOVIR [Concomitant]
  5. EFAVIRENZ [Concomitant]
  6. STOCRIN [Concomitant]
     Dosage: 600MG PER DAY
     Route: 048
     Dates: start: 20040201

REACTIONS (5)
  - ANAEMIA [None]
  - DRUG INTERACTION [None]
  - HEPATIC FIBROSIS [None]
  - HEPATITIS [None]
  - OBESITY [None]
